FAERS Safety Report 9260471 (Version 1)
Quarter: 2013Q2

REPORT INFORMATION
  Report Type: Spontaneous
  Country: FI (occurrence: FI)
  Receive Date: 20130429
  Receipt Date: 20130503
  Transmission Date: 20140414
  Serious: No
  Sender: FDA-Public Use
  Company Number: FI-ABBOTT-13X-055-1082402-00

PATIENT
  Age: 41 Year
  Sex: Male

DRUGS (4)
  1. DEPRAKINE /00228501/ [Suspect]
     Indication: BIPOLAR DISORDER
     Route: 048
     Dates: start: 2000
  2. LAMOTRIGINE [Suspect]
     Indication: BIPOLAR DISORDER
     Route: 048
     Dates: start: 2012
  3. HUMALOG [Concomitant]
     Indication: PRODUCT USED FOR UNKNOWN INDICATION
  4. LEVEMIR [Concomitant]
     Indication: PRODUCT USED FOR UNKNOWN INDICATION

REACTIONS (2)
  - Alcohol interaction [Unknown]
  - Drug ineffective [Unknown]
